FAERS Safety Report 8235664-8 (Version None)
Quarter: 2012Q1

REPORT INFORMATION
  Report Type: 
  Country: None (occurrence: None)
  Receive Date: 20120326
  Receipt Date: 20120316
  Transmission Date: 20120608
  Serious: Yes (Other)
  Sender: FDA-Public Use
  Company Number: US-ASTRAZENECA-2012SE18392

PATIENT
  Age: 61 Year
  Sex: Female
  Weight: 98.9 kg

DRUGS (6)
  1. ATACAND [Concomitant]
     Indication: HYPERTENSION
     Route: 048
  2. LOPRESSOR [Concomitant]
     Indication: HYPERTENSION
  3. METFORMIN HCL [Concomitant]
     Indication: DIABETES MELLITUS
     Route: 048
  4. ROBAXIN [Concomitant]
     Indication: BACK PAIN
  5. CRESTOR [Suspect]
     Indication: BLOOD CHOLESTEROL ABNORMAL
     Route: 048
  6. FISH OIL [Concomitant]
     Indication: HYPERTENSION

REACTIONS (4)
  - SYNCOPE [None]
  - ABNORMAL FAECES [None]
  - BLOOD TRIGLYCERIDES INCREASED [None]
  - WRONG TECHNIQUE IN DRUG USAGE PROCESS [None]
